FAERS Safety Report 12892387 (Version 7)
Quarter: 2017Q1

REPORT INFORMATION
  Report Type: Report from Study
  Country: US (occurrence: US)
  Receive Date: 20161028
  Receipt Date: 20170131
  Transmission Date: 20170428
  Serious: Yes (Hospitalization)
  Sender: FDA-Public Use
  Company Number: US-ACTELION-A-NJ2016-140616

PATIENT
  Age: 49 Year
  Sex: Female
  Weight: 57.14 kg

DRUGS (7)
  1. UPTRAVI [Suspect]
     Active Substance: SELEXIPAG
     Indication: PULMONARY HYPERTENSION
     Dosage: 200 MCG, BID
     Route: 048
     Dates: start: 20160726
  2. UPTRAVI [Suspect]
     Active Substance: SELEXIPAG
     Dosage: 200 MCG, BID
     Route: 048
     Dates: start: 20160810
  3. REMODULIN [Concomitant]
     Active Substance: TREPROSTINIL
  4. ADCIRCA [Concomitant]
     Active Substance: TADALAFIL
  5. COUMADIN [Concomitant]
     Active Substance: WARFARIN SODIUM
  6. UPTRAVI [Suspect]
     Active Substance: SELEXIPAG
     Dosage: 400 MCG, BID
     Route: 048
  7. LETAIRIS [Concomitant]
     Active Substance: AMBRISENTAN

REACTIONS (16)
  - Vomiting [Recovered/Resolved]
  - Pain in jaw [Unknown]
  - Myocardial necrosis marker increased [Unknown]
  - Chest pain [Unknown]
  - Headache [Unknown]
  - Arthralgia [Unknown]
  - Nausea [Recovered/Resolved]
  - Insomnia [Unknown]
  - Migraine [Unknown]
  - Confusional state [Unknown]
  - Nerve compression [Unknown]
  - Diarrhoea [Recovered/Resolved]
  - Spinal deformity [Unknown]
  - Dysphonia [Unknown]
  - Back pain [Unknown]
  - Pain in extremity [Unknown]
